FAERS Safety Report 25288096 (Version 3)
Quarter: 2025Q2

REPORT INFORMATION
  Report Type: Report from Study
  Country: CN (occurrence: CN)
  Receive Date: 20250509
  Receipt Date: 20250604
  Transmission Date: 20250716
  Serious: Yes (Other)
  Sender: GILEAD
  Company Number: CN-GILEAD-2025-0713000

PATIENT

DRUGS (1)
  1. SACITUZUMAB GOVITECAN-HZIY [Suspect]
     Active Substance: SACITUZUMAB GOVITECAN-HZIY
     Indication: Triple negative breast cancer
     Route: 042

REACTIONS (2)
  - Metastases to chest wall [Unknown]
  - Metastases to lung [Unknown]
